FAERS Safety Report 4839307-2 (Version None)
Quarter: 2005Q4

REPORT INFORMATION
  Report Type: 
  Country: None (occurrence: None)
  Receive Date: 20051129
  Receipt Date: 20041216
  Transmission Date: 20060501
  Serious: No
  Sender: FDA-Public Use
  Company Number: US-GLAXOSMITHKLINE-A0537596A

PATIENT
  Age: 37 Year
  Sex: Female

DRUGS (3)
  1. WELLBUTRIN [Suspect]
     Indication: DRUG USE FOR UNKNOWN INDICATION
     Dosage: 150MG TWICE PER DAY
     Route: 048
     Dates: start: 20041208
  2. SYNTHROID [Concomitant]
  3. DETROL LA [Concomitant]

REACTIONS (3)
  - EUPHORIC MOOD [None]
  - TREMOR [None]
  - VERTIGO [None]
